FAERS Safety Report 24141706 (Version 8)
Quarter: 2025Q1

REPORT INFORMATION
  Report Type: Spontaneous
  Country: US (occurrence: US)
  Receive Date: 20240726
  Receipt Date: 20250113
  Transmission Date: 20250408
  Serious: Yes (Other)
  Sender: INCYTE
  Company Number: US-INCYTE CORPORATION-2024IN007659

PATIENT

DRUGS (18)
  1. JAKAFI [Suspect]
     Active Substance: RUXOLITINIB
     Indication: Chronic myelomonocytic leukaemia
     Dosage: 5 MILLIGRAM, QD (WITH OR WITHOUT FOOD)
     Route: 048
     Dates: start: 20240723
  2. JAKAFI [Suspect]
     Active Substance: RUXOLITINIB
     Dosage: 5 MILLIGRAM, QD (WITH OR WITHOUT FOOD)
     Route: 048
     Dates: start: 20240724
  3. JAKAFI [Suspect]
     Active Substance: RUXOLITINIB
     Dosage: 5 MILLIGRAM, QD (WITH OR WITHOUT FOOD)
     Route: 048
  4. JAKAFI [Suspect]
     Active Substance: RUXOLITINIB
     Dosage: 5 MILLIGRAM, QD (WITH OR WITHOUT FOOD)
     Route: 048
  5. HYDROXYUREA [Suspect]
     Active Substance: HYDROXYUREA
     Route: 065
  6. ACETAMINOPHEN [Concomitant]
     Active Substance: ACETAMINOPHEN
     Indication: Product used for unknown indication
     Route: 065
  7. AMLODIPINE BESYLATE [Concomitant]
     Active Substance: AMLODIPINE BESYLATE
     Indication: Product used for unknown indication
     Route: 065
  8. ASPIRIN [Concomitant]
     Active Substance: ASPIRIN
     Indication: Product used for unknown indication
     Route: 065
  9. ATORVASTATIN [Concomitant]
     Active Substance: ATORVASTATIN
     Indication: Product used for unknown indication
     Route: 065
  10. LOSARTAN POTASSIUM [Concomitant]
     Active Substance: LOSARTAN POTASSIUM
     Indication: Product used for unknown indication
     Route: 065
  11. METAMUCIL [Concomitant]
     Active Substance: PLANTAGO SEED
     Indication: Product used for unknown indication
     Route: 065
  12. METOPROLOL SUCCINATE [Concomitant]
     Active Substance: METOPROLOL SUCCINATE
     Indication: Product used for unknown indication
     Route: 065
  13. OMEPRAZOLE [Concomitant]
     Active Substance: OMEPRAZOLE
     Indication: Product used for unknown indication
     Route: 065
  14. SOLIFENACIN [Concomitant]
     Active Substance: SOLIFENACIN
     Indication: Product used for unknown indication
     Route: 065
  15. TRAMADOL HCL [Concomitant]
     Active Substance: TRAMADOL HYDROCHLORIDE
     Indication: Product used for unknown indication
     Route: 065
  16. VITAMIN D NOS [Concomitant]
     Active Substance: CHOLECALCIFEROL\ERGOCALCIFEROL
     Indication: Product used for unknown indication
     Route: 065
  17. BETAMETASON [BETAMETHASONE] [Concomitant]
     Indication: Product used for unknown indication
     Route: 065
  18. NYSTATIN [Concomitant]
     Active Substance: NYSTATIN
     Indication: Product used for unknown indication
     Route: 048

REACTIONS (20)
  - Haematochezia [Unknown]
  - Malaise [Unknown]
  - Abdominal pain upper [Unknown]
  - Abnormal dreams [Unknown]
  - Urinary tract infection [Recovering/Resolving]
  - Pruritus genital [Unknown]
  - Post micturition dribble [Recovering/Resolving]
  - Constipation [Unknown]
  - Vomiting [Unknown]
  - Abdominal discomfort [Unknown]
  - Flatulence [Unknown]
  - Diarrhoea [Unknown]
  - Faeces discoloured [Unknown]
  - Dry mouth [Recovering/Resolving]
  - Lip dry [Recovering/Resolving]
  - Oropharyngeal discomfort [Not Recovered/Not Resolved]
  - Back pain [Unknown]
  - Large intestine polyp [Unknown]
  - Candida infection [Unknown]
  - Off label use [Unknown]

NARRATIVE: CASE EVENT DATE: 20240723
